FAERS Safety Report 9440263 (Version 1)
Quarter: 2013Q3

REPORT INFORMATION
  Report Type: Report from Study
  Country: AU (occurrence: AU)
  Receive Date: 20130805
  Receipt Date: 20130805
  Transmission Date: 20140515
  Serious: Yes (Hospitalization)
  Sender: FDA-Public Use
  Company Number: PHHY2013AU055571

PATIENT
  Sex: Male

DRUGS (2)
  1. CLOZARIL [Suspect]
     Dosage: 200 MG, UNK
     Dates: start: 20090407
  2. CLOZARIL [Suspect]
     Dosage: 12.5 MG, UNK
     Dates: start: 20130730

REACTIONS (2)
  - Abdominal adhesions [Unknown]
  - Intestinal obstruction [Unknown]
